FAERS Safety Report 5246010-6 (Version None)
Quarter: 2007Q1

REPORT INFORMATION
  Report Type: 
  Country: None (occurrence: None)
  Receive Date: 20070220
  Receipt Date: 20070206
  Transmission Date: 20070707
  Serious: Yes (Hospitalization)
  Sender: FDA-Public Use
  Company Number: 2007-00199

PATIENT
  Age: 54 Year
  Sex: Female
  Weight: 66 kg

DRUGS (14)
  1. VELCADE [Suspect]
     Indication: MULTIPLE MYELOMA
     Dosage: 1.30 MG/M2, UNK, INTRAVENOUS
     Route: 042
     Dates: start: 20061121, end: 20070123
  2. DOXORUBICIN HCL [Suspect]
     Indication: MULTIPLE MYELOMA
  3. DEXAMETHASONE [Suspect]
     Indication: MULTIPLE MYELOMA
  4. LANSOPRAZOLE [Concomitant]
  5. OROVITE (THIAMINE HYDROCHLORIDE, RIBOFLAVIN, NICOTINAMIDE, PYRIDOXINE [Concomitant]
  6. VALTREX [Concomitant]
  7. NEXIUM [Concomitant]
  8. SEPTRIN FORTE (SULFAMETHOXAZOLE, TRIMETHOPRIM) [Concomitant]
  9. ALLOPURINOL [Concomitant]
  10. AMARYL [Concomitant]
  11. INSULATARD NPH HUMAN [Concomitant]
  12. TRAMADOL HCL [Concomitant]
  13. NEORECORMON (EPOETIN BETA) [Concomitant]
  14. TINZAPARIN SODIUM (HEPARIN-FRACTION, SODIUM SALT) [Concomitant]

REACTIONS (4)
  - CONFUSIONAL STATE [None]
  - DYSPNOEA [None]
  - PYREXIA [None]
  - SUPRAVENTRICULAR TACHYCARDIA [None]
